FAERS Safety Report 9346655 (Version 1)
Quarter: 2013Q2

REPORT INFORMATION
  Report Type: Spontaneous
  Country: GR (occurrence: GR)
  Receive Date: 20130613
  Receipt Date: 20130613
  Transmission Date: 20140414
  Serious: Yes (Life-Threatening, Hospitalization, Other)
  Sender: FDA-Public Use
  Company Number: GR-PFIZER INC-2013173688

PATIENT
  Age: 20 Year
  Sex: Male

DRUGS (4)
  1. FLUOROURACIL [Suspect]
     Indication: GASTROOESOPHAGEAL CANCER
     Dosage: UNK
  2. TRASTUZUMAB [Suspect]
     Indication: GASTROOESOPHAGEAL CANCER
     Dosage: UNK
  3. CISPLATIN [Concomitant]
     Indication: GASTROOESOPHAGEAL CANCER
     Dosage: UNK
  4. DOCETAXEL [Concomitant]
     Indication: GASTROOESOPHAGEAL CANCER
     Dosage: UNK

REACTIONS (2)
  - Cardiac failure acute [Recovered/Resolved]
  - Myocardial ischaemia [Recovered/Resolved]
